FAERS Safety Report 7441796-4 (Version None)
Quarter: 2011Q2

REPORT INFORMATION
  Report Type: 
  Country: None (occurrence: None)
  Receive Date: 20110428
  Receipt Date: 20110425
  Transmission Date: 20111010
  Serious: Yes (Death, Hospitalization)
  Sender: FDA-Public Use
  Company Number: US-PFIZER INC-2011060459

PATIENT
  Sex: Male
  Weight: 81.633 kg

DRUGS (4)
  1. ARICEPT [Concomitant]
  2. ACETYLSALICYLIC ACID [Concomitant]
  3. PLAVIX [Concomitant]
  4. CELEBREX [Suspect]
     Indication: MOVEMENT DISORDER
     Dosage: 300 MG
     Route: 048
     Dates: start: 20090101, end: 20110220

REACTIONS (1)
  - RENAL FAILURE [None]
